FAERS Safety Report 25728159 (Version 1)
Quarter: 2025Q3

REPORT INFORMATION
  Report Type: Spontaneous
  Country: US (occurrence: US)
  Receive Date: 20250826
  Receipt Date: 20250826
  Transmission Date: 20251021
  Serious: No
  Sender: SANOFI AVENTIS
  Company Number: US-SA-2025SA255576

PATIENT
  Sex: Female

DRUGS (5)
  1. DUPIXENT [Suspect]
     Active Substance: DUPILUMAB
     Indication: Dermatitis
     Dosage: 300 MG, QOW
     Route: 058
  2. WELLBUTRIN [Concomitant]
     Active Substance: BUPROPION HYDROCHLORIDE
     Dosage: 100 MG, Q12H
     Route: 065
  3. NALTREXONE HYDROCHLORIDE [Concomitant]
     Active Substance: NALTREXONE HYDROCHLORIDE
  4. CELEXA [Concomitant]
     Active Substance: CITALOPRAM HYDROBROMIDE
  5. INTUNIV [Concomitant]
     Active Substance: GUANFACINE HYDROCHLORIDE
     Dosage: 2 MG, QD

REACTIONS (2)
  - Anxiety [Unknown]
  - Panic reaction [Unknown]
